FAERS Safety Report 11362998 (Version 1)
Quarter: 2015Q3

REPORT INFORMATION
  Report Type: Spontaneous
  Country: DE (occurrence: None)
  Receive Date: 20150807
  Receipt Date: 20150807
  Transmission Date: 20151125
  Serious: Yes (Death)
  Sender: FDA-Public Use
  Company Number: DE-AGG-07-2015-0601

PATIENT
  Age: 77 Year
  Sex: Female

DRUGS (6)
  1. ATENOLOL. [Concomitant]
     Active Substance: ATENOLOL
  2. TELMISARTAN. [Concomitant]
     Active Substance: TELMISARTAN
  3. MAGNESIUM [Concomitant]
     Active Substance: MAGNESIUM
  4. ORAL ANTI DIABETIC [Concomitant]
  5. INDAPAMIDE. [Concomitant]
     Active Substance: INDAPAMIDE
  6. TIROFIBAN HCL [Suspect]
     Active Substance: TIROFIBAN HYDROCHLORIDE
     Indication: ANTIPLATELET THERAPY
     Dosage: 1 X 7.5 ML EVERY 1 DAY(S)
     Route: 042
     Dates: start: 20071007, end: 20071007

REACTIONS (3)
  - Multi-organ failure [None]
  - Cardiogenic shock [None]
  - Atrial fibrillation [None]

NARRATIVE: CASE EVENT DATE: 20071018
